FAERS Safety Report 9026176 (Version 1)
Quarter: 2012Q4

REPORT INFORMATION
  Report Type: Spontaneous
  Country: US (occurrence: None)
  Receive Date: 20121214
  Receipt Date: 20121214
  Transmission Date: 20130627
  Serious: No
  Sender: FDA-Public Use
  Company Number: None

PATIENT
  Sex: Female

DRUGS (2)
  1. INLYTA [Suspect]
     Indication: RENAL NEOPLASM
     Route: 048
     Dates: start: 20120824
  2. INLYTA [Suspect]
     Indication: NEOPLASM MALIGNANT
     Route: 048
     Dates: start: 20120824

REACTIONS (2)
  - Alopecia [None]
  - Oedema peripheral [None]
